FAERS Safety Report 8151982-6 (Version None)
Quarter: 2012Q1

REPORT INFORMATION
  Report Type: 
  Country: None (occurrence: None)
  Receive Date: 20120221
  Receipt Date: 20120217
  Transmission Date: 20120608
  Serious: No
  Sender: FDA-Public Use
  Company Number: US-PFIZER INC-2012043569

PATIENT
  Sex: Female

DRUGS (2)
  1. IBUPROFEN (ADVIL) [Suspect]
     Indication: BACK DISORDER
     Dosage: UNK
     Dates: start: 20080101
  2. IBUPROFEN (ADVIL) [Suspect]
     Indication: ARTHRALGIA

REACTIONS (2)
  - POLLAKIURIA [None]
  - ADVERSE REACTION [None]
